FAERS Safety Report 4363578-2 (Version None)
Quarter: 2004Q2

REPORT INFORMATION
  Report Type: 
  Country: None (occurrence: None)
  Receive Date: 20040524
  Receipt Date: 20040524
  Transmission Date: 20050107
  Serious: Yes (Hospitalization)
  Sender: FDA-Public Use
  Company Number: None

PATIENT
  Age: 85 Year
  Sex: Female

DRUGS (1)
  1. ZYPREXA [Suspect]
     Dosage: 2.5 MG PO BID
     Route: 048
     Dates: start: 20031104, end: 20031106

REACTIONS (2)
  - CONFUSIONAL STATE [None]
  - DELIRIUM [None]
